FAERS Safety Report 5765686-8 (Version None)
Quarter: 2008Q2

REPORT INFORMATION
  Report Type: 
  Country: None (occurrence: None)
  Receive Date: 20080609
  Receipt Date: 20080609
  Transmission Date: 20081010
  Serious: Yes (Life-Threatening)
  Sender: FDA-Public Use
  Company Number: None

PATIENT
  Sex: Male
  Weight: 86.5 kg

DRUGS (4)
  1. OXALIPLATIN [Suspect]
     Indication: OESOPHAGEAL CARCINOMA
     Dosage: 180.4 MG WEEKLY X 3 DOSES IV
     Route: 042
     Dates: start: 20061221, end: 20070118
  2. OXALIPLATIN [Suspect]
  3. OXALIPLATIN [Suspect]
  4. CAPECITABINE [Suspect]
     Indication: OESOPHAGEAL CARCINOMA
     Dosage: 2600 MG QD M-F PO
     Route: 048
     Dates: start: 20061221, end: 20070201

REACTIONS (1)
  - PULMONARY EMBOLISM [None]
